FAERS Safety Report 14706927 (Version 2)
Quarter: 2018Q2

REPORT INFORMATION
  Report Type: Spontaneous
  Country: FR (occurrence: FR)
  Receive Date: 20180403
  Receipt Date: 20180504
  Transmission Date: 20180711
  Serious: Yes (Death, Hospitalization)
  Sender: FDA-Public Use
  Company Number: FR-SUN PHARMACEUTICAL INDUSTRIES LTD-2018R1-168934

PATIENT
  Age: 50 Year
  Sex: Female
  Weight: 57 kg

DRUGS (3)
  1. FLUOROURACILE PFIZER [Suspect]
     Active Substance: FLUOROURACIL
     Indication: COLON CANCER
     Dosage: 4800 MG, UNK
     Route: 041
     Dates: start: 20130910, end: 20130912
  2. FLUOROURACILE PFIZER [Suspect]
     Active Substance: FLUOROURACIL
     Dosage: 644 MG, 400 MG/M2 SUR 10 MIN EN IVL
     Route: 040
     Dates: start: 20130910, end: 20130910
  3. OXALIPLATIN. [Suspect]
     Active Substance: OXALIPLATIN
     Indication: COLON CANCER
     Dosage: 135 MG, 85 MG/M2 EN PERF IV SUR 2H
     Route: 041
     Dates: start: 20130910, end: 20130910

REACTIONS (5)
  - Dyspnoea [Fatal]
  - Acute coronary syndrome [Fatal]
  - Stress cardiomyopathy [Fatal]
  - Chest pain [Fatal]
  - Acute pulmonary oedema [Fatal]

NARRATIVE: CASE EVENT DATE: 20130913
